FAERS Safety Report 17678957 (Version 1)
Quarter: 2020Q2

REPORT INFORMATION
  Report Type: Spontaneous
  Country: US (occurrence: US)
  Receive Date: 20200417
  Receipt Date: 20200417
  Transmission Date: 20200714
  Serious: No
  Sender: FDA-Public Use
  Company Number: US-DRREDDYS-USA/USA/20/0121853

PATIENT
  Age: 74 Year
  Sex: Male
  Weight: 67.5 kg

DRUGS (1)
  1. TOBRAMYCIN INHALATION SOLUTION [Suspect]
     Active Substance: TOBRAMYCIN
     Indication: PSEUDOMONAS INFECTION
     Dosage: 300MG/5ML INHALATION
     Route: 045
     Dates: start: 20200326

REACTIONS (3)
  - Product use issue [Unknown]
  - Underdose [Unknown]
  - Drug administered in wrong device [Unknown]
